FAERS Safety Report 12435335 (Version 2)
Quarter: 2017Q2

REPORT INFORMATION
  Report Type: Spontaneous
  Country: US (occurrence: US)
  Receive Date: 20160603
  Receipt Date: 20170607
  Transmission Date: 20170830
  Serious: Yes (Other)
  Sender: FDA-Public Use
  Company Number: US-ROCHE-1669406

PATIENT
  Sex: Male

DRUGS (4)
  1. XELODA [Suspect]
     Active Substance: CAPECITABINE
     Indication: NEOPLASM MALIGNANT
     Dosage: 3 TABLETS, TWICE IN A DAY FOR 14 DAYS THEN 7 DAYS OFF AND REPEAT SAME CYCLE
     Route: 048
     Dates: start: 20140816
  2. XELODA [Suspect]
     Active Substance: CAPECITABINE
     Dosage: BIDX7
     Route: 048
     Dates: start: 20141028
  3. XELODA [Suspect]
     Active Substance: CAPECITABINE
     Dosage: FOR 7 DAYS AND THEN 7 DAYS OFF AND REPEAT SAME CYCLE
     Route: 048
     Dates: start: 20140917
  4. XELODA [Suspect]
     Active Substance: CAPECITABINE
     Dosage: 2 TABLETS TWICE IN A DAY FOR 14 DAYS THEN 7 DAYS OFF
     Route: 048
     Dates: start: 20151112

REACTIONS (4)
  - Diarrhoea [Not Recovered/Not Resolved]
  - Dehydration [Recovered/Resolved]
  - Asthenia [Unknown]
  - Fatigue [Not Recovered/Not Resolved]
